FAERS Safety Report 4942878-9 (Version None)
Quarter: 2006Q1

REPORT INFORMATION
  Report Type: 
  Country: None (occurrence: None)
  Receive Date: 20060309
  Receipt Date: 20060227
  Transmission Date: 20060701
  Serious: Yes (Life-Threatening, Hospitalization)
  Sender: FDA-Public Use
  Company Number: 2006030852

PATIENT
  Age: 72 Year
  Sex: Female
  Weight: 52 kg

DRUGS (1)
  1. AZULFIDINE [Suspect]
     Indication: POLYARTHRITIS
     Dosage: 1500 MG (500 MG, 3 IN 1 D), ORAL
     Route: 048
     Dates: start: 20050801

REACTIONS (10)
  - DIARRHOEA [None]
  - HEPATOTOXICITY [None]
  - JAUNDICE [None]
  - LEUKOPENIA [None]
  - NAUSEA [None]
  - NEUTROPENIA [None]
  - OESOPHAGEAL INFECTION [None]
  - SEPSIS [None]
  - STOMATITIS [None]
  - VOMITING [None]
